FAERS Safety Report 12728136 (Version 2)
Quarter: 2016Q3

REPORT INFORMATION
  Report Type: Report from Study
  Country: US (occurrence: US)
  Receive Date: 20160909
  Receipt Date: 20160915
  Transmission Date: 20161109
  Serious: Yes (Hospitalization)
  Sender: FDA-Public Use
  Company Number: US-TEVA-691281USA

PATIENT
  Age: 23 Year
  Sex: Female
  Weight: 92 kg

DRUGS (4)
  1. TREANDA [Suspect]
     Active Substance: BENDAMUSTINE HYDROCHLORIDE
     Indication: HODGKIN^S DISEASE
     Dosage: 2 DOSES TOTAL
     Route: 042
     Dates: start: 20160712, end: 20160804
  2. DEXAMETHASONE. [Concomitant]
     Active Substance: DEXAMETHASONE
     Indication: PROPHYLAXIS OF NAUSEA AND VOMITING
     Dosage: PRE CHEMO
     Route: 048
     Dates: start: 20160712, end: 20160804
  3. BRENTUXIMAB-VEDOTIN [Suspect]
     Active Substance: BRENTUXIMAB VEDOTIN
     Indication: HODGKIN^S DISEASE
     Dosage: 3 DOSES TOTAL
     Route: 042
     Dates: start: 20160712, end: 20160804
  4. ONDANSETRON [Concomitant]
     Active Substance: ONDANSETRON
     Indication: PROPHYLAXIS OF NAUSEA AND VOMITING
     Dosage: PRE CHEMO
     Route: 048
     Dates: start: 20160712, end: 20160804

REACTIONS (1)
  - Pyelonephritis [Recovered/Resolved]

NARRATIVE: CASE EVENT DATE: 20160804
